FAERS Safety Report 14223332 (Version 1)
Quarter: 2017Q4

REPORT INFORMATION
  Report Type: Spontaneous
  Country: FR (occurrence: FR)
  Receive Date: 20171124
  Receipt Date: 20171124
  Transmission Date: 20180321
  Serious: Yes (Hospitalization)
  Sender: FDA-Public Use
  Company Number: FR-MERCK KGAA-2035019

PATIENT
  Age: 51 Year
  Sex: Male

DRUGS (2)
  1. NOVOTHYROX [Suspect]
     Active Substance: LEVOTHYROXINE SODIUM
     Indication: PRODUCT USED FOR UNKNOWN INDICATION
  2. NOVOTHYROX [Suspect]
     Active Substance: LEVOTHYROXINE SODIUM

REACTIONS (14)
  - Blood thyroid stimulating hormone increased [None]
  - Muscle spasms [None]
  - Irritability [None]
  - Loss of libido [None]
  - Spinal pain [None]
  - C-reactive protein increased [None]
  - Alopecia [None]
  - Myalgia [None]
  - Fatigue [None]
  - Insomnia [None]
  - Mental fatigue [None]
  - Weight increased [None]
  - Mean cell volume abnormal [None]
  - Psychiatric symptom [None]

NARRATIVE: CASE EVENT DATE: 201708
